FAERS Safety Report 4989846-9 (Version None)
Quarter: 2006Q2

REPORT INFORMATION
  Report Type: 
  Country: None (occurrence: None)
  Receive Date: 20060421
  Receipt Date: 20060406
  Transmission Date: 20061013
  Serious: Yes (Other)
  Sender: FDA-Public Use
  Company Number: 2006BH007687

PATIENT
  Age: 14 Year
  Sex: Female

DRUGS (5)
  1. HUMAN ALBUMIN GRIFOLS 20% [Suspect]
     Indication: PLEURAL EFFUSION
     Dosage: 200 ML; AS NEEDED IVDRI
     Route: 041
     Dates: start: 20060216, end: 20060216
  2. HUMAN ALBUMIN GRIFOLS 20% [Suspect]
     Indication: PROTEIN TOTAL ABNORMAL
     Dosage: 200 ML; AS NEEDED IVDRI
     Route: 041
     Dates: start: 20060216, end: 20060216
  3. MERONEM [Concomitant]
  4. ACETAMINOPHEN [Concomitant]
  5. VOLTAREN [Concomitant]

REACTIONS (4)
  - BLOOD PRESSURE INCREASED [None]
  - CHEST DISCOMFORT [None]
  - DIZZINESS [None]
  - HYPERSENSITIVITY [None]
